FAERS Safety Report 8140137 (Version 6)
Quarter: 2013Q1

REPORT INFORMATION
  Report Type: Report from Study
  Country: IT (occurrence: IT)
  Receive Date: 20110916
  Receipt Date: 20130124
  Transmission Date: 20140127
  Serious: Yes (Hospitalization)
  Sender: FDA-Public Use
  Company Number: PHHO2011IT15448

PATIENT
  Age: 76 Year
  Sex: Male
  Weight: 80 kg

DRUGS (2)
  1. AMN107 [Suspect]
     Indication: CHRONIC MYELOID LEUKAEMIA
     Dosage: 150 MG, BID
     Route: 048
     Dates: start: 20110107, end: 20111004
  2. ANTIHYPERTENSIVES [Concomitant]

REACTIONS (3)
  - Coronary artery disease [Recovered/Resolved]
  - Prinzmetal angina [Recovered/Resolved with Sequelae]
  - Concomitant disease progression [Recovered/Resolved]
